FAERS Safety Report 9912935 (Version 1)
Quarter: 2014Q1

REPORT INFORMATION
  Report Type: Spontaneous
  Country: GB (occurrence: None)
  Receive Date: 20140214
  Receipt Date: 20140214
  Transmission Date: 20141002
  Serious: Yes (Other)
  Sender: FDA-Public Use
  Company Number: AUR-APL-2014-01461

PATIENT
  Age: 66 Year
  Sex: Female

DRUGS (3)
  1. AMLODIPINE (AMLODIPINE) [Suspect]
     Indication: HYPERTENSION
     Route: 048
     Dates: start: 201309, end: 201310
  2. INDAPAMIDE (INDAPAMIDE) [Suspect]
     Indication: JOINT SWELLING
     Route: 048
     Dates: start: 201310, end: 201311
  3. BENDROFLUMETHIAZIDE (BENDROFLUMETHIAZIDE) [Concomitant]

REACTIONS (9)
  - Joint swelling [None]
  - Asthenia [None]
  - Disturbance in attention [None]
  - Nausea [None]
  - Feeling abnormal [None]
  - Speech disorder [None]
  - Osteitis [None]
  - Feeling abnormal [None]
  - Local swelling [None]
